FAERS Safety Report 9203553 (Version 1)
Quarter: 2013Q1

REPORT INFORMATION
  Report Type: Spontaneous
  Country: US (occurrence: None)
  Receive Date: 20120709
  Receipt Date: 20120709
  Transmission Date: 20140127
  Serious: Yes (Other)
  Sender: FDA-Public Use
  Company Number: PHHY2011US68851

PATIENT
  Age: 55 Year
  Sex: Female

DRUGS (1)
  1. GLEEVEC (IMATINIB) [Suspect]
     Indication: GASTROINTESTINAL STROMAL TUMOUR
     Route: 048
     Dates: start: 200709

REACTIONS (5)
  - Gastrointestinal stromal tumour [None]
  - Neoplasm malignant [None]
  - Laceration [None]
  - Gastrointestinal disorder [None]
  - Fluid retention [None]
